FAERS Safety Report 12580094 (Version 2)
Quarter: 2016Q3

REPORT INFORMATION
  Report Type: Spontaneous
  Country: US (occurrence: US)
  Receive Date: 20160721
  Receipt Date: 20160722
  Transmission Date: 20161109
  Serious: Yes (Other)
  Sender: FDA-Public Use
  Company Number: US-TEVA-677902USA

PATIENT
  Age: 63 Year
  Sex: Female

DRUGS (1)
  1. COPAXONE [Suspect]
     Active Substance: GLATIRAMER ACETATE
     Indication: MULTIPLE SCLEROSIS
     Route: 058
     Dates: start: 20150216, end: 20160509

REACTIONS (5)
  - Dysphagia [Unknown]
  - Paraesthesia [Unknown]
  - Injection site mass [Unknown]
  - Injection site haemorrhage [Unknown]
  - Confusional state [Unknown]

NARRATIVE: CASE EVENT DATE: 20160509
